FAERS Safety Report 5830505-8 (Version None)
Quarter: 2008Q3

REPORT INFORMATION
  Report Type: 
  Country: None (occurrence: None)
  Receive Date: 20080801
  Receipt Date: 20080721
  Transmission Date: 20090109
  Serious: Yes (Life-Threatening, Hospitalization, Other)
  Sender: FDA-Public Use
  Company Number: US-PFIZER INC-2006108056

PATIENT
  Sex: Male
  Weight: 69 kg

DRUGS (17)
  1. MARAVIROC [Suspect]
     Indication: HIV INFECTION
     Route: 048
     Dates: start: 20050616, end: 20070518
  2. ANDROGEL [Concomitant]
     Route: 062
  3. TRUVADA [Concomitant]
     Indication: HIV INFECTION
     Route: 048
     Dates: start: 20050815
  4. TRIAMCINOLONE [Concomitant]
     Dosage: TEXT:0.05%
     Route: 062
     Dates: start: 20050130
  5. VALIUM [Concomitant]
     Indication: ANXIETY
     Dosage: TEXT:5-10 MG
     Route: 048
  6. VITAMIN B-12 [Concomitant]
     Indication: VITAMIN SUPPLEMENTATION
     Route: 030
  7. ZYRTEC [Concomitant]
     Indication: SEASONAL ALLERGY
     Route: 048
     Dates: start: 20060529
  8. NASAREL [Concomitant]
     Indication: NASAL CONGESTION
     Dosage: TEXT:2 SPRAYS BID
     Route: 045
  9. KALETRA [Concomitant]
     Indication: HIV INFECTION
     Dosage: TEXT:1066/266 MG
     Route: 048
     Dates: start: 20040130
  10. IBUPROFEN [Concomitant]
     Indication: PAIN
     Route: 048
  11. CYCLOCORT [Concomitant]
     Dosage: TEXT:0.05%
     Route: 062
  12. BACTRIM DS [Concomitant]
     Route: 048
  13. MECLIZINE [Concomitant]
     Indication: DIZZINESS
     Route: 048
  14. NEXIUM [Concomitant]
     Route: 048
  15. REMERON [Concomitant]
     Route: 048
  16. REGLAN [Concomitant]
     Route: 048
  17. TRAZODONE HCL [Concomitant]
     Route: 048

REACTIONS (2)
  - OESOPHAGEAL CARCINOMA [None]
  - OESOPHAGEAL STENOSIS [None]
